FAERS Safety Report 5727542-0 (Version None)
Quarter: 2008Q2

REPORT INFORMATION
  Report Type: 
  Country: None (occurrence: None)
  Receive Date: 20080505
  Receipt Date: 20080501
  Transmission Date: 20081010
  Serious: Yes (Other)
  Sender: FDA-Public Use
  Company Number: A0724964A

PATIENT
  Sex: Male

DRUGS (1)
  1. NICORETTE [Suspect]
     Indication: SMOKING CESSATION THERAPY
     Route: 002

REACTIONS (4)
  - AGGRESSION [None]
  - DRUG ADMINISTRATION ERROR [None]
  - EMOTIONAL DISORDER [None]
  - IRRITABILITY [None]
